FAERS Safety Report 9921067 (Version 1)
Quarter: 2014Q1

REPORT INFORMATION
  Report Type: Report from Study
  Country: US (occurrence: US)
  Receive Date: 20140225
  Receipt Date: 20140225
  Transmission Date: 20141002
  Serious: Yes (Hospitalization)
  Sender: FDA-Public Use
  Company Number: US-ROCHE-1352233

PATIENT
  Sex: Male

DRUGS (1)
  1. LUCENTIS [Suspect]
     Indication: DIABETIC RETINAL OEDEMA
     Dosage: RIGHT EYE
     Route: 050

REACTIONS (6)
  - Malaise [Unknown]
  - Asthenia [Unknown]
  - Muscular weakness [Unknown]
  - Loss of consciousness [Unknown]
  - Abnormal sensation in eye [Unknown]
  - Vitreous floaters [Unknown]
